FAERS Safety Report 9270745 (Version 1)
Quarter: 2013Q2

REPORT INFORMATION
  Report Type: Spontaneous
  Country: JP (occurrence: JP)
  Receive Date: 20130504
  Receipt Date: 20130504
  Transmission Date: 20140414
  Serious: Yes (Death, Other)
  Sender: FDA-Public Use
  Company Number: JP-MYLANLABS-2013S1008808

PATIENT
  Age: 64 Year
  Sex: Male

DRUGS (3)
  1. CARBOPLATIN [Suspect]
     Indication: LUNG ADENOCARCINOMA
     Route: 041
  2. ALIMTA [Suspect]
     Indication: LUNG ADENOCARCINOMA
     Route: 041
  3. AVASTIN /01555201/ [Suspect]
     Indication: LUNG ADENOCARCINOMA
     Route: 041

REACTIONS (6)
  - Death [Fatal]
  - Oesophageal ulcer [Unknown]
  - Oesophageal ulcer haemorrhage [Unknown]
  - Tracheo-oesophageal fistula [Unknown]
  - Pneumonia aspiration [Unknown]
  - Pneumothorax [Unknown]
